FAERS Safety Report 16715953 (Version 1)
Quarter: 2019Q3

REPORT INFORMATION
  Report Type: Spontaneous
  Country: ES (occurrence: ES)
  Receive Date: 20190819
  Receipt Date: 20190819
  Transmission Date: 20191005
  Serious: Yes (Hospitalization)
  Sender: FDA-Public Use
  Company Number: ES-MYLANLABS-2019M1076488

PATIENT
  Age: 79 Year
  Sex: Male

DRUGS (2)
  1. MEIACT [Suspect]
     Active Substance: CEFDITOREN PIVOXIL
     Indication: RESPIRATORY TRACT INFECTION
     Dosage: 400 MILLIGRAM, BID
     Route: 048
  2. CLARITHROMYCIN. [Suspect]
     Active Substance: CLARITHROMYCIN
     Indication: RESPIRATORY TRACT INFECTION
     Dosage: UNK
     Route: 065
     Dates: start: 20190214, end: 20190218

REACTIONS (3)
  - Drug ineffective [Unknown]
  - Condition aggravated [Unknown]
  - Respiratory tract infection [Unknown]
